FAERS Safety Report 4337954-8 (Version None)
Quarter: 2004Q2

REPORT INFORMATION
  Report Type: 
  Country: None (occurrence: None)
  Receive Date: 20040407
  Receipt Date: 20040325
  Transmission Date: 20050107
  Serious: Yes (Hospitalization)
  Sender: FDA-Public Use
  Company Number: AT-JNJFOC-20040305788

PATIENT
  Age: 82 Year
  Sex: Female
  Weight: 50 kg

DRUGS (5)
  1. RISPERDAL [Suspect]
     Indication: AGITATION
     Dosage: 0.5 MG, 2 IN 1 DAY, ORAL
     Route: 048
     Dates: start: 20030111, end: 20030308
  2. MODURETIC (MODURETIC) TABLETS [Suspect]
     Indication: OEDEMA PERIPHERAL
     Dosage: 1 DOSE (S), 1 IN 1 DAY, ORAL
     Route: 048
     Dates: start: 20030811, end: 20030826
  3. DOMINAL FORTE (TABLETS) PROTHIPENDYL HYDROCHLORIDE [Concomitant]
  4. EPILAN-D-GEROT (PHENYTOIN) TABLETS [Concomitant]
  5. ERGOTOP (NICERGOLINE) FILM COATED TABLET [Concomitant]

REACTIONS (4)
  - DRUG INTERACTION [None]
  - HYPONATRAEMIA [None]
  - URINE OSMOLARITY DECREASED [None]
  - VOMITING PSYCHOGENIC [None]
